FAERS Safety Report 8530690-3 (Version None)
Quarter: 2012Q3

REPORT INFORMATION
  Report Type: 
  Country: None (occurrence: None)
  Receive Date: 20120723
  Receipt Date: 20120718
  Transmission Date: 20120928
  Serious: Yes (Other)
  Sender: FDA-Public Use
  Company Number: GB-ABBOTT-11P-167-0840369-00

PATIENT
  Sex: Female
  Weight: 2.33 kg

DRUGS (1)
  1. HUMIRA [Suspect]
     Indication: MATERNAL EXPOSURE TIMING UNSPECIFIED
     Route: 064

REACTIONS (3)
  - PREMATURE DELIVERY [None]
  - FOETAL EXPOSURE DURING PREGNANCY [None]
  - NORMAL NEWBORN [None]
